FAERS Safety Report 25140079 (Version 1)
Quarter: 2025Q1

REPORT INFORMATION
  Report Type: Spontaneous
  Country: PL (occurrence: PL)
  Receive Date: 20250331
  Receipt Date: 20250331
  Transmission Date: 20250409
  Serious: Yes (Hospitalization, Other)
  Sender: MYLAN
  Company Number: None

PATIENT
  Age: 27 Year
  Sex: Female
  Weight: 58 kg

DRUGS (12)
  1. PREGABALIN [Suspect]
     Active Substance: PREGABALIN
     Indication: Product used for unknown indication
  2. PREGABALIN [Suspect]
     Active Substance: PREGABALIN
     Route: 048
  3. PREGABALIN [Suspect]
     Active Substance: PREGABALIN
     Route: 048
  4. PREGABALIN [Suspect]
     Active Substance: PREGABALIN
  5. ESTAZOLAM [Suspect]
     Active Substance: ESTAZOLAM
     Indication: Product used for unknown indication
  6. ESTAZOLAM [Suspect]
     Active Substance: ESTAZOLAM
  7. ESTAZOLAM [Suspect]
     Active Substance: ESTAZOLAM
     Route: 048
  8. ESTAZOLAM [Suspect]
     Active Substance: ESTAZOLAM
     Route: 048
  9. ESTAZOLAM [Suspect]
     Active Substance: ESTAZOLAM
  10. ESTAZOLAM [Suspect]
     Active Substance: ESTAZOLAM
  11. ESTAZOLAM [Suspect]
     Active Substance: ESTAZOLAM
     Route: 048
  12. ESTAZOLAM [Suspect]
     Active Substance: ESTAZOLAM
     Route: 048

REACTIONS (4)
  - Toxicity to various agents [Recovered/Resolved]
  - Suicide attempt [Recovered/Resolved]
  - Somnolence [Recovered/Resolved]
  - Drug abuse [Unknown]

NARRATIVE: CASE EVENT DATE: 20211009
